FAERS Safety Report 9376283 (Version 1)
Quarter: 2013Q3

REPORT INFORMATION
  Report Type: Spontaneous
  Country: TR (occurrence: TR)
  Receive Date: 20130701
  Receipt Date: 20130701
  Transmission Date: 20140515
  Serious: Yes (Other)
  Sender: FDA-Public Use
  Company Number: PHHY2013TR065682

PATIENT
  Age: 73 Year
  Sex: Female

DRUGS (1)
  1. ANASTROZOLE [Suspect]
     Indication: HORMONE THERAPY

REACTIONS (2)
  - Glomerulonephritis [Unknown]
  - Renal failure acute [Unknown]
